FAERS Safety Report 4404268-7 (Version None)
Quarter: 2004Q3

REPORT INFORMATION
  Report Type: 
  Country: None (occurrence: None)
  Receive Date: 20040720
  Receipt Date: 20040707
  Transmission Date: 20050211
  Serious: Yes (Hospitalization, Other)
  Sender: FDA-Public Use
  Company Number: 2004045757

PATIENT
  Age: 50 Year
  Sex: Male

DRUGS (2)
  1. LITHIUM CARBONATE [Suspect]
     Indication: BIPOLAR DISORDER
     Dates: start: 19740101, end: 19941101
  2. CARBAMAZEPINE [Suspect]
     Indication: ILL-DEFINED DISORDER
     Dates: start: 19941101

REACTIONS (5)
  - BLOOD PARATHYROID HORMONE INCREASED [None]
  - HYPERPARATHYROIDISM [None]
  - HYPOMANIA [None]
  - OSTEOPOROSIS [None]
  - PARATHYROID TUMOUR BENIGN [None]
